FAERS Safety Report 4511815-3 (Version None)
Quarter: 2004Q4

REPORT INFORMATION
  Report Type: 
  Country: None (occurrence: None)
  Receive Date: 20041123
  Receipt Date: 20041112
  Transmission Date: 20050328
  Serious: Yes (Other)
  Sender: FDA-Public Use
  Company Number: 2004083706

PATIENT
  Age: 62 Year
  Sex: Male
  Weight: 85.2762 kg

DRUGS (3)
  1. NEURONTIN [Suspect]
     Indication: GASTROOESOPHAGEAL REFLUX DISEASE
     Dosage: 600 MG (300 MG, 2 IN 1 D), ORAL
     Route: 048
     Dates: start: 20021218, end: 20040501
  2. LITHIUM CARBONATE [Concomitant]
  3. ESOMEPRAZOLE (ESOMEPRAZOLE) [Concomitant]

REACTIONS (6)
  - APATHY [None]
  - ERYTHEMA [None]
  - FATIGUE [None]
  - NERVOUSNESS [None]
  - PERSONALITY CHANGE [None]
  - SELF ESTEEM DECREASED [None]
